FAERS Safety Report 5429819-5 (Version None)
Quarter: 2007Q3

REPORT INFORMATION
  Report Type: 
  Country: None (occurrence: None)
  Receive Date: 20070829
  Receipt Date: 20070820
  Transmission Date: 20080115
  Serious: Yes (Hospitalization)
  Sender: FDA-Public Use
  Company Number: US-SANOFI-SYNTHELABO-F03200700143

PATIENT
  Sex: Female
  Weight: 57.6 kg

DRUGS (15)
  1. 5-FU [Suspect]
     Indication: RECTAL CANCER
     Route: 042
     Dates: start: 20070516, end: 20070516
  2. LEUCOVORIN CALCIUM [Suspect]
     Indication: RECTAL CANCER
     Route: 042
     Dates: start: 20070323, end: 20070323
  3. BEVACIZUMAB [Suspect]
     Indication: RECTAL CANCER
     Route: 042
     Dates: start: 20070516, end: 20070516
  4. OXALIPLATIN [Suspect]
     Indication: RECTAL CANCER
     Dosage: 65.6 MG (40 MG/M2)
     Route: 042
     Dates: start: 20070516, end: 20070516
  5. ZOSYN [Concomitant]
     Dosage: UNK
     Route: 042
  6. FLAGYL [Concomitant]
     Route: 048
  7. PROTONIX [Concomitant]
     Route: 065
  8. MAGIC MOUTH WASH [Concomitant]
     Dosage: UNK
     Route: 048
  9. GELCLAIR GEL [Concomitant]
     Dosage: UNK
     Route: 065
  10. IMODIUM A-D [Concomitant]
     Dosage: 1 TO 2 TABS AFTER EACH BM, MAX: 8/DAY
     Route: 048
  11. PROCHLORPERAZINE [Concomitant]
     Route: 048
  12. ZOFRAN [Concomitant]
     Dosage: 4 MG THREE TIMES DAILY AS NEEDED
     Route: 048
  13. ASPIRIN [Concomitant]
     Dosage: UNK
     Route: 048
  14. PREMARIN [Concomitant]
     Dosage: UNK
     Route: 065
  15. DIOVAN [Concomitant]
     Dosage: UNK
     Route: 048

REACTIONS (2)
  - ANASTOMOTIC LEAK [None]
  - PERIRECTAL ABSCESS [None]
